FAERS Safety Report 16719841 (Version 2)
Quarter: 2019Q4

REPORT INFORMATION
  Report Type: Spontaneous
  Country: US (occurrence: US)
  Receive Date: 20190820
  Receipt Date: 20191001
  Transmission Date: 20200122
  Serious: Yes (Hospitalization, Other)
  Sender: FDA-Public Use
  Company Number: US-HIKMA PHARMACEUTICALS USA INC.-US-H14001-19-04592

PATIENT
  Sex: Male

DRUGS (1)
  1. BUPRENORPHINE/NALOXONE [Suspect]
     Active Substance: BUPRENORPHINE\NALOXONE
     Indication: THERAPY CESSATION
     Dosage: FORM STRENGTH: 8 MG / 2 MG
     Route: 048
     Dates: start: 2019, end: 2019

REACTIONS (3)
  - Cervical spinal stenosis [Recovering/Resolving]
  - Myelopathy [Recovering/Resolving]
  - Incorrect route of product administration [Recovered/Resolved]
